FAERS Safety Report 6443969-6 (Version None)
Quarter: 2009Q4

REPORT INFORMATION
  Report Type: 
  Country: None (occurrence: None)
  Receive Date: 20091116
  Receipt Date: 20091116
  Transmission Date: 20100525
  Serious: Yes (Other)
  Sender: FDA-Public Use
  Company Number: None

PATIENT
  Age: 53 Year
  Sex: Male
  Weight: 88.4514 kg

DRUGS (1)
  1. TACROLIMUS [Suspect]
     Indication: RENAL TRANSPLANT
     Dosage: 3 .5 MILLIGRAM DAILY BUCCAL
     Route: 002
     Dates: start: 20090801, end: 20091115

REACTIONS (2)
  - DROP ATTACKS [None]
  - PRODUCT SUBSTITUTION ISSUE [None]
